FAERS Safety Report 13366325 (Version 1)
Quarter: 2017Q1

REPORT INFORMATION
  Report Type: Spontaneous
  Country: BR (occurrence: BR)
  Receive Date: 20170323
  Receipt Date: 20170323
  Transmission Date: 20170429
  Serious: Yes (Hospitalization)
  Sender: FDA-Public Use
  Company Number: BR-ELI_LILLY_AND_COMPANY-BR201703007393

PATIENT
  Age: 80 Year
  Sex: Male

DRUGS (2)
  1. GINKGO BILOBA [Concomitant]
     Active Substance: GINKGO
     Indication: PRODUCT USED FOR UNKNOWN INDICATION
     Dosage: UNK UNK, UNKNOWN
  2. EFFIENT [Suspect]
     Active Substance: PRASUGREL HYDROCHLORIDE
     Indication: ATRIAL FIBRILLATION
     Dosage: 5 MG, QD
     Route: 065
     Dates: end: 20170228

REACTIONS (4)
  - Wound haemorrhage [Recovered/Resolved]
  - Off label use [Recovered/Resolved]
  - Gallbladder disorder [Recovered/Resolved]
  - Inguinal hernia [Recovered/Resolved]

NARRATIVE: CASE EVENT DATE: 20170309
